FAERS Safety Report 22235333 (Version 1)
Quarter: 2023Q2

REPORT INFORMATION
  Report Type: Spontaneous
  Country: US (occurrence: US)
  Receive Date: 20230420
  Receipt Date: 20230420
  Transmission Date: 20230722
  Serious: No
  Sender: FDA-Public Use
  Company Number: US-BAYER-2023A054832

PATIENT
  Age: 82 Year
  Sex: Female

DRUGS (1)
  1. ALEVE PM [Suspect]
     Active Substance: DIPHENHYDRAMINE HYDROCHLORIDE\NAPROXEN SODIUM
     Indication: Insomnia
     Dosage: 0.5 DF, ONCE
     Route: 048
     Dates: start: 20230418, end: 20230418

REACTIONS (3)
  - Product use in unapproved indication [Recovered/Resolved]
  - Tremor [Unknown]
  - Incorrect dose administered [Unknown]

NARRATIVE: CASE EVENT DATE: 20230418
